FAERS Safety Report 24237101 (Version 1)
Quarter: 2024Q3

REPORT INFORMATION
  Report Type: Spontaneous
  Country: PR (occurrence: PR)
  Receive Date: 20240822
  Receipt Date: 20240822
  Transmission Date: 20241016
  Serious: Yes (Hospitalization, Other)
  Sender: BRISTOL MYERS SQUIBB
  Company Number: PR-BRISTOL-MYERS SQUIBB COMPANY-2024-130187

PATIENT
  Age: 65 Year
  Weight: 64.41 kg

DRUGS (5)
  1. REVLIMID [Suspect]
     Active Substance: LENALIDOMIDE
     Indication: Plasma cell myeloma
     Route: 048
     Dates: start: 20230923
  2. LISINOPRIL [Concomitant]
     Active Substance: LISINOPRIL
  3. PLAVIX [Concomitant]
     Active Substance: CLOPIDOGREL BISULFATE
  4. LIPITOR [Concomitant]
     Active Substance: ATORVASTATIN CALCIUM
  5. INSULIN HUMAN [Concomitant]
     Active Substance: INSULIN HUMAN

REACTIONS (4)
  - Colitis [Recovering/Resolving]
  - Blood glucose decreased [Unknown]
  - Hypertension [Unknown]
  - Haemoglobin decreased [Recovering/Resolving]
